FAERS Safety Report 23971400 (Version 1)
Quarter: 2024Q2

REPORT INFORMATION
  Report Type: Spontaneous
  Country: US (occurrence: None)
  Receive Date: 20240612
  Receipt Date: 20240612
  Transmission Date: 20240716
  Serious: Yes (Other)
  Sender: FDA-Public Use
  Company Number: None

PATIENT
  Sex: Male

DRUGS (5)
  1. MYCOPHENOLIC ACID [Suspect]
     Active Substance: MYCOPHENOLIC ACID
     Indication: Complications of transplanted kidney
     Dates: start: 20230720
  2. ASPIRIN EC [Concomitant]
  3. MULTIVITAMIN TAB MEN 50+ [Concomitant]
  4. TACROLIMUS [Concomitant]
  5. TACROLIMUS A [Concomitant]

REACTIONS (1)
  - Limb injury [None]
